FAERS Safety Report 7688043-6 (Version None)
Quarter: 2011Q3

REPORT INFORMATION
  Report Type: 
  Country: None (occurrence: None)
  Receive Date: 20110817
  Receipt Date: 20110815
  Transmission Date: 20111222
  Serious: No
  Sender: FDA-Public Use
  Company Number: US-PFIZER INC-2011187916

PATIENT
  Age: 20 Year
  Sex: Male
  Weight: 63.4 kg

DRUGS (2)
  1. ADVIL PM [Suspect]
     Dosage: UNK
     Route: 048
  2. ADVIL PM [Suspect]
     Indication: SLEEP DISORDER
     Dosage: 200 MG, 2X/DAY
     Route: 048
     Dates: start: 20110814

REACTIONS (1)
  - INSOMNIA [None]
